FAERS Safety Report 16701536 (Version 4)
Quarter: 2021Q1

REPORT INFORMATION
  Report Type: Spontaneous
  Country: US (occurrence: US)
  Receive Date: 20190814
  Receipt Date: 20210301
  Transmission Date: 20210419
  Serious: No
  Sender: FDA-Public Use
  Company Number: US-ELI_LILLY_AND_COMPANY-US201908005789

PATIENT
  Sex: Female

DRUGS (3)
  1. TRULICITY [Suspect]
     Active Substance: DULAGLUTIDE
     Indication: PRODUCT USED FOR UNKNOWN INDICATION
     Dosage: 1.5 MG, UNKNOWN
     Route: 065
     Dates: start: 2018
  2. TRULICITY [Suspect]
     Active Substance: DULAGLUTIDE
     Dosage: 1.5 MG, UNKNOWN
     Route: 065
  3. TRULICITY [Suspect]
     Active Substance: DULAGLUTIDE
     Dosage: 1.5 MG, UNKNOWN
     Route: 065

REACTIONS (12)
  - Pain [Unknown]
  - Dry eye [Unknown]
  - Urine output decreased [Unknown]
  - Insomnia [Unknown]
  - Eyelids pruritus [Unknown]
  - Erythema of eyelid [Unknown]
  - Feeling cold [Unknown]
  - Dysuria [Unknown]
  - Periorbital swelling [Unknown]
  - Hyperhidrosis [Unknown]
  - Pruritus [Unknown]
  - Nocturia [Unknown]

NARRATIVE: CASE EVENT DATE: 2020
